FAERS Safety Report 6566167-4 (Version None)
Quarter: 2010Q1

REPORT INFORMATION
  Report Type: 
  Country: None (occurrence: None)
  Receive Date: 20100127
  Receipt Date: 20100109
  Transmission Date: 20100710
  Serious: Yes (Other)
  Sender: FDA-Public Use
  Company Number: RIUS-2010-001

PATIENT
  Age: 67 Year
  Sex: Female

DRUGS (13)
  1. RICOLA LEMON MINT COUGH/THROAT DROPS [Suspect]
     Indication: COUGH
     Dosage: AS NEEDED 060
     Dates: start: 20091027
  2. RICOLA LEMON MINT COUGH/THROAT DROPS [Suspect]
     Indication: COUGH
     Dosage: AS NEEDED 060
     Dates: start: 20091210
  3. ASPIRIN [Concomitant]
  4. SERTRALINE HCL [Concomitant]
  5. ZOCOR [Concomitant]
  6. LEVOTHROID [Concomitant]
  7. CALTRATE [Concomitant]
  8. FLAXSEED [Concomitant]
  9. GLUCOSAMINE/CHONDROITIN SULFATE [Concomitant]
  10. PEPCID AC [Concomitant]
  11. BENADRYL [Concomitant]
  12. ZYRTEC [Concomitant]
  13. EPIPEN [Concomitant]

REACTIONS (3)
  - ANGIOEDEMA [None]
  - REACTION TO DRUG EXCIPIENTS [None]
  - THROAT IRRITATION [None]
